FAERS Safety Report 25871233 (Version 1)
Quarter: 2025Q4

REPORT INFORMATION
  Report Type: Other
  Country: US (occurrence: US)
  Receive Date: 20251001
  Receipt Date: 20251001
  Transmission Date: 20260118
  Serious: No
  Sender: TRAVERE THERAPEUTICS
  Company Number: US-TRAVERE-2025TVT01530

PATIENT
  Age: 35 Year
  Sex: Female

DRUGS (9)
  1. FILSPARI [Suspect]
     Active Substance: SPARSENTAN
     Indication: Haematuria
     Route: 048
     Dates: start: 20250307
  2. FILSPARI [Suspect]
     Active Substance: SPARSENTAN
     Indication: Proteinuria
  3. FILSPARI [Suspect]
     Active Substance: SPARSENTAN
     Indication: Hypertensive nephropathy
  4. FILSPARI [Suspect]
     Active Substance: SPARSENTAN
     Indication: Chronic kidney disease
  5. LISINOPRIL [Suspect]
     Active Substance: LISINOPRIL
     Indication: Essential hypertension
     Dates: end: 202508
  6. METOPROLOL TARTRATE [Suspect]
     Active Substance: METOPROLOL TARTRATE
     Indication: Essential hypertension
     Dates: end: 202508
  7. ASPIRIN [Concomitant]
     Active Substance: ASPIRIN
  8. FISH OIL [Concomitant]
     Active Substance: FISH OIL
  9. PRAVASTATIN [Concomitant]
     Active Substance: PRAVASTATIN

REACTIONS (3)
  - Blood pressure decreased [Unknown]
  - Product use in unapproved indication [Unknown]
  - Contraindicated product prescribed [Unknown]
